FAERS Safety Report 14804917 (Version 1)
Quarter: 2018Q2

REPORT INFORMATION
  Report Type: Spontaneous
  Country: US (occurrence: US)
  Receive Date: 20180425
  Receipt Date: 20180425
  Transmission Date: 20180711
  Serious: Yes (Hospitalization, Disabling)
  Sender: FDA-Public Use
  Company Number: US-SA-2018SA112644

PATIENT
  Age: 42 Year
  Sex: Female

DRUGS (8)
  1. TIZANIDINE. [Suspect]
     Active Substance: TIZANIDINE
     Route: 065
  2. PARACETAMOL/BUTALBITAL/CAFFEINE [Suspect]
     Active Substance: ACETAMINOPHEN\BUTALBITAL\CAFFEINE
     Route: 065
  3. ZOLPIDEM [Suspect]
     Active Substance: ZOLPIDEM\ZOLPIDEM TARTRATE
     Dosage: ZOLPIDEM 5 MG QHS
     Route: 065
  4. HYDROMORPHONE HYDROCHLORIDE. [Suspect]
     Active Substance: HYDROMORPHONE HYDROCHLORIDE
     Dosage: EVERY 3 HOURS PRN
     Route: 065
  5. DIPHENHYDRAMINE. [Suspect]
     Active Substance: DIPHENHYDRAMINE
     Route: 065
  6. DIAZEPAM. [Suspect]
     Active Substance: DIAZEPAM
     Route: 065
  7. GABAPENTIN. [Suspect]
     Active Substance: GABAPENTIN
     Route: 065
  8. TRAMADOL. [Suspect]
     Active Substance: TRAMADOL
     Dosage: TRAMADOL 50 MG EVERY 8 HOURS PRN
     Route: 065

REACTIONS (3)
  - Loss of personal independence in daily activities [Unknown]
  - Multiple drug therapy [Unknown]
  - Dementia [Unknown]
